FAERS Safety Report 5613177-7 (Version None)
Quarter: 2008Q1

REPORT INFORMATION
  Report Type: 
  Country: None (occurrence: None)
  Receive Date: 20080129
  Receipt Date: 20080123
  Transmission Date: 20080703
  Serious: Yes (Death, Hospitalization)
  Sender: FDA-Public Use
  Company Number: TPG2007A00682

PATIENT
  Sex: Female

DRUGS (3)
  1. ACTOS [Suspect]
     Indication: TYPE 2 DIABETES MELLITUS
     Dosage: PER ORAL
     Route: 048
  2. ENALAPRIL MALEATE [Concomitant]
  3. MOXONIDINE (MOXONIDINE) [Concomitant]

REACTIONS (5)
  - ERYTHEMA [None]
  - NEOPLASM MALIGNANT [None]
  - NO THERAPEUTIC RESPONSE [None]
  - OEDEMA PERIPHERAL [None]
  - SWELLING FACE [None]
